FAERS Safety Report 9902634 (Version 3)
Quarter: 2014Q1

REPORT INFORMATION
  Report Type: Spontaneous
  Country: US (occurrence: US)
  Receive Date: 20140217
  Receipt Date: 20140312
  Transmission Date: 20141002
  Serious: Yes (Hospitalization, Other)
  Sender: FDA-Public Use
  Company Number: US-JNJFOC-20140119462

PATIENT
  Age: 15 Year
  Sex: Male

DRUGS (2)
  1. RISPERDAL [Suspect]
     Indication: SCHIZOPHRENIA
     Route: 048
     Dates: start: 201212, end: 2013
  2. RISPERDAL [Suspect]
     Indication: SCHIZOPHRENIA
     Route: 048

REACTIONS (10)
  - Panic attack [Unknown]
  - Disorientation [Recovered/Resolved]
  - Crying [Unknown]
  - Paranoia [Recovered/Resolved]
  - Hallucination, auditory [Recovered/Resolved]
  - Hallucination, visual [Unknown]
  - Cognitive disorder [Unknown]
  - Violence-related symptom [Unknown]
  - Treatment noncompliance [Unknown]
  - Drug dose omission [Recovered/Resolved]
